FAERS Safety Report 5132136-4 (Version None)
Quarter: 2006Q4

REPORT INFORMATION
  Report Type: 
  Country: None (occurrence: None)
  Receive Date: 20061017
  Receipt Date: 20061004
  Transmission Date: 20070319
  Serious: Yes (Disabling, Other)
  Sender: FDA-Public Use
  Company Number: 2005005031

PATIENT
  Sex: Female
  Weight: 95.2554 kg

DRUGS (1)
  1. CELEBREX [Suspect]

REACTIONS (5)
  - ASTHENIA [None]
  - INJURY [None]
  - MEMORY IMPAIRMENT [None]
  - MUSCLE SPASMS [None]
  - MYOCARDIAL INFARCTION [None]
